FAERS Safety Report 19180157 (Version 1)
Quarter: 2021Q2

REPORT INFORMATION
  Report Type: Other
  Country: GB (occurrence: GB)
  Receive Date: 20210426
  Receipt Date: 20210426
  Transmission Date: 20210717
  Serious: Yes (Life-Threatening, Hospitalization, Other)
  Sender: FDA-Public Use
  Company Number: GB-ASTELLAS-2021US014682

PATIENT
  Age: 64 Year
  Sex: Female

DRUGS (2)
  1. SOLIFENACIN [Suspect]
     Active Substance: SOLIFENACIN
     Indication: STRESS URINARY INCONTINENCE
     Route: 048
     Dates: start: 20150404
  2. SOLIFENACIN [Suspect]
     Active Substance: SOLIFENACIN
     Dosage: UNK UNK, UNKNOWN FREQ.
     Route: 048
     Dates: end: 20210401

REACTIONS (4)
  - Heat stroke [Recovered/Resolved with Sequelae]
  - Anhidrosis [Unknown]
  - Hypertension [Unknown]
  - Syncope [Unknown]
